FAERS Safety Report 14516261 (Version 4)
Quarter: 2020Q4

REPORT INFORMATION
  Report Type: Report from Study
  Country: CA (occurrence: CA)
  Receive Date: 20180211
  Receipt Date: 20201013
  Transmission Date: 20210113
  Serious: Yes (Other)
  Sender: FDA-Public Use
  Company Number: PHHY2014CA070576

PATIENT
  Age: 40 Year
  Sex: Male

DRUGS (1)
  1. GILENYA [Suspect]
     Active Substance: FINGOLIMOD HYDROCHLORIDE
     Indication: RELAPSING-REMITTING MULTIPLE SCLEROSIS
     Dosage: 0.5 MG, QD
     Route: 048
     Dates: start: 20140603

REACTIONS (7)
  - Hypertension [Unknown]
  - Gait disturbance [Unknown]
  - Pain in extremity [Unknown]
  - Expanded disability status scale score increased [Unknown]
  - Drug ineffective [Unknown]
  - Diabetes mellitus [Recovering/Resolving]
  - Sinus bradycardia [Unknown]

NARRATIVE: CASE EVENT DATE: 20140603
